FAERS Safety Report 4914719-7 (Version None)
Quarter: 2006Q1

REPORT INFORMATION
  Report Type: 
  Country: None (occurrence: None)
  Receive Date: 20060216
  Receipt Date: 20050609
  Transmission Date: 20060701
  Serious: Yes (Hospitalization)
  Sender: FDA-Public Use
  Company Number: US-MERCK-0506USA01562

PATIENT
  Age: 76 Year
  Sex: Female
  Weight: 86 kg

DRUGS (9)
  1. VIOXX [Suspect]
     Indication: ARTHRITIS
     Route: 048
     Dates: start: 20010101, end: 20020101
  2. LOPRESSOR [Concomitant]
     Indication: HYPERTENSION
     Route: 065
  3. LOPRESSOR [Concomitant]
     Indication: CARDIAC DISORDER
     Route: 065
  4. LASIX [Concomitant]
     Route: 065
  5. ASPIRIN [Concomitant]
     Route: 065
  6. PLAVIX [Concomitant]
     Indication: ANTIPLATELET THERAPY
     Route: 065
  7. LIPITOR [Concomitant]
     Indication: BLOOD CHOLESTEROL INCREASED
     Route: 065
  8. ESTROGENS (UNSPECIFIED) [Concomitant]
     Indication: HORMONE REPLACEMENT THERAPY
     Route: 065
     Dates: start: 19990101, end: 20020101
  9. TYLENOL [Concomitant]
     Route: 065

REACTIONS (4)
  - BREAST CANCER [None]
  - CEREBROVASCULAR ACCIDENT [None]
  - EYE HAEMORRHAGE [None]
  - GOUT [None]
